FAERS Safety Report 9513646 (Version 1)
Quarter: 2013Q3

REPORT INFORMATION
  Report Type: Spontaneous
  Country: US (occurrence: US)
  Receive Date: 20130910
  Receipt Date: 20130910
  Transmission Date: 20140515
  Serious: No
  Sender: FDA-Public Use
  Company Number: US-TEVA-383128USA

PATIENT
  Sex: Female

DRUGS (1)
  1. ENALAPRIL [Suspect]

REACTIONS (1)
  - Paraesthesia [Unknown]
